FAERS Safety Report 6769414-9 (Version None)
Quarter: 2010Q2

REPORT INFORMATION
  Report Type: 
  Country: None (occurrence: None)
  Receive Date: 20100615
  Receipt Date: 20100610
  Transmission Date: 20101027
  Serious: Yes (Other)
  Sender: FDA-Public Use
  Company Number: FR-ROXANE LABORATORIES, INC.-2010-DE-03193GD

PATIENT
  Age: 37 Year
  Sex: Female

DRUGS (2)
  1. BISOLVON COMPOSITUM [Suspect]
     Indication: NASOPHARYNGITIS
  2. CODEINE [Suspect]
     Indication: ALLERGY TEST
     Dosage: 15 MG
     Route: 048

REACTIONS (2)
  - PRURITUS GENERALISED [None]
  - TOXIC SKIN ERUPTION [None]
